FAERS Safety Report 15640496 (Version 1)
Quarter: 2018Q4

REPORT INFORMATION
  Report Type: Spontaneous
  Country: FR (occurrence: FR)
  Receive Date: 20181120
  Receipt Date: 20181120
  Transmission Date: 20190205
  Serious: Yes (Death)
  Sender: FDA-Public Use
  Company Number: PHHY2018FR159156

PATIENT
  Age: 92 Year
  Sex: Male
  Weight: 68 kg

DRUGS (1)
  1. ACLASTA [Suspect]
     Active Substance: ZOLEDRONIC ACID
     Indication: OSTEOPOROTIC FRACTURE
     Route: 041

REACTIONS (4)
  - Interstitial lung disease [Fatal]
  - Respiratory distress [Fatal]
  - Dyspnoea [Fatal]
  - Chest discomfort [Fatal]

NARRATIVE: CASE EVENT DATE: 20180831
